FAERS Safety Report 10121014 (Version 3)
Quarter: 2014Q2

REPORT INFORMATION
  Report Type: Spontaneous
  Country: US (occurrence: US)
  Receive Date: 20140427
  Receipt Date: 20140505
  Transmission Date: 20141212
  Serious: No
  Sender: FDA-Public Use
  Company Number: US-009507513-1404USA013071

PATIENT
  Sex: 0
  Weight: 101.59 kg

DRUGS (2)
  1. NEXPLANON [Suspect]
     Dosage: 68 MG/ONE ROD INSERTED,EVERY 3 YEARS
     Route: 059
     Dates: end: 20140423
  2. NEXPLANON [Suspect]
     Dosage: UNK
     Route: 059
     Dates: start: 20140423

REACTIONS (4)
  - Medical device complication [Unknown]
  - Device breakage [Unknown]
  - No adverse event [Unknown]
  - Product quality issue [Unknown]
